FAERS Safety Report 9288371 (Version 2)
Quarter: 2013Q3

REPORT INFORMATION
  Report Type: Spontaneous
  Country: US (occurrence: US)
  Receive Date: 20130514
  Receipt Date: 20130924
  Transmission Date: 20140515
  Serious: No
  Sender: FDA-Public Use
  Company Number: US-009507513-1305USA002413

PATIENT
  Sex: Female

DRUGS (3)
  1. JANUMET [Suspect]
     Dosage: 5500 MG, BID
     Route: 048
  2. ZOCOR [Suspect]
     Route: 048
  3. LISINOPRIL [Suspect]
     Route: 048

REACTIONS (2)
  - Hepatic enzyme increased [Unknown]
  - Overdose [Unknown]
